FAERS Safety Report 14684796 (Version 1)
Quarter: 2018Q1

REPORT INFORMATION
  Report Type: Report from Study
  Country: JP (occurrence: JP)
  Receive Date: 20180327
  Receipt Date: 20180327
  Transmission Date: 20180509
  Serious: Yes (Other)
  Sender: FDA-Public Use
  Company Number: JP-MYLANLABS-2018M1018110

PATIENT
  Age: 67 Year
  Sex: Female

DRUGS (2)
  1. CISPLATIN. [Suspect]
     Active Substance: CISPLATIN
     Indication: NASAL SINUS CANCER
     Dosage: CISPLATIN INFUSION SCHEDULED FOR 7 WEEKS
     Route: 013
  2. SODIUM THIOSULFATE [Concomitant]
     Active Substance: SODIUM THIOSULFATE
     Indication: NASAL SINUS CANCER
     Dosage: 20G/M2; INFUSED AT THE SAME TIME AS THAT OF CISPLATIN ADMINISTRATION
     Route: 041

REACTIONS (1)
  - Retinopathy [Unknown]
